FAERS Safety Report 7959060-3 (Version None)
Quarter: 2011Q4

REPORT INFORMATION
  Report Type: 
  Country: None (occurrence: None)
  Receive Date: 20111206
  Receipt Date: 20110907
  Transmission Date: 20120403
  Serious: No
  Sender: FDA-Public Use
  Company Number: US-GLAXOSMITHKLINE-A0943729A

PATIENT
  Age: 8 Year
  Sex: Male

DRUGS (3)
  1. SALBUTOL [Concomitant]
  2. RESPERIDOL [Concomitant]
  3. LAMICTAL [Suspect]
     Indication: CONVULSION
     Dosage: 100MG TWICE PER DAY
     Route: 048
     Dates: start: 20110701, end: 20110822

REACTIONS (3)
  - FAECAL INCONTINENCE [None]
  - FLATULENCE [None]
  - NAUSEA [None]
